FAERS Safety Report 7324502-3 (Version None)
Quarter: 2011Q1

REPORT INFORMATION
  Report Type: 
  Country: None (occurrence: None)
  Receive Date: 20110218
  Receipt Date: 20110207
  Transmission Date: 20110831
  Serious: Yes (Other)
  Sender: FDA-Public Use
  Company Number: CIP11000264

PATIENT
  Age: 61 Year
  Sex: Female

DRUGS (5)
  1. ACTONEL [Suspect]
     Dosage: 150 MG ONCE A MONTH, ORAL
     Route: 048
     Dates: start: 20080101, end: 20110101
  2. ACTONEL [Suspect]
     Dosage: 35 MG ONCE A WEEK, ORAL
     Route: 048
     Dates: start: 20030101, end: 20080101
  3. METHOTREXATE [Concomitant]
  4. LIPITOR [Concomitant]
  5. CALCIUM WITH VITAMIN D	/00944201/ (CALCIUM CARBONATE, COLECALCIFEROL) [Concomitant]

REACTIONS (5)
  - TIBIA FRACTURE [None]
  - STRESS FRACTURE [None]
  - FOOT FRACTURE [None]
  - PAIN IN EXTREMITY [None]
  - FEMUR FRACTURE [None]
